FAERS Safety Report 17113216 (Version 1)
Quarter: 2019Q4

REPORT INFORMATION
  Report Type: Report from Study
  Country: None (occurrence: US)
  Receive Date: 20191204
  Receipt Date: 20191204
  Transmission Date: 20200122
  Serious: Yes (Hospitalization, Other)
  Sender: FDA-Public Use
  Company Number: US-ABBVIE-19K-163-3173567-00

PATIENT
  Sex: Male

DRUGS (1)
  1. HUMIRA [Suspect]
     Active Substance: ADALIMUMAB
     Indication: PSORIASIS
     Route: 058

REACTIONS (7)
  - Calculus bladder [Unknown]
  - Prostatic operation [Unknown]
  - Bladder spasm [Unknown]
  - Psoriasis [Unknown]
  - Procedural pain [Unknown]
  - Device issue [Unknown]
  - Stress [Unknown]

NARRATIVE: CASE EVENT DATE: 2019
